FAERS Safety Report 10204435 (Version 1)
Quarter: 2014Q2

REPORT INFORMATION
  Report Type: Spontaneous
  Country: US (occurrence: US)
  Receive Date: 20140529
  Receipt Date: 20140529
  Transmission Date: 20141212
  Serious: No
  Sender: FDA-Public Use
  Company Number: US-SANOFI-AVENTIS-2013SA061738

PATIENT
  Age: 55 Year
  Sex: Female

DRUGS (4)
  1. LANTUS [Suspect]
     Dosage: DOSE:27 UNIT(S)
     Route: 051
  2. SUTENT [Suspect]
     Dates: start: 201301
  3. HUMULIN [Suspect]
  4. DYAZIDE [Suspect]
     Dosage: DOSE: 25/37.5 MG

REACTIONS (16)
  - Flatulence [Unknown]
  - Constipation [Unknown]
  - Diarrhoea [Unknown]
  - Aphagia [Unknown]
  - Ageusia [Unknown]
  - Oropharyngeal pain [Unknown]
  - Nausea [Unknown]
  - Hyperhidrosis [Unknown]
  - Asthenia [Unknown]
  - Fatigue [Unknown]
  - Pyrexia [Unknown]
  - Rash [Unknown]
  - Skin discolouration [Unknown]
  - Blood pressure increased [Unknown]
  - Blood glucose increased [Unknown]
  - Blood glucose decreased [Unknown]
